FAERS Safety Report 22252651 (Version 1)
Quarter: 2023Q2

REPORT INFORMATION
  Report Type: Spontaneous
  Country: ES (occurrence: ES)
  Receive Date: 20230426
  Receipt Date: 20230426
  Transmission Date: 20230722
  Serious: Yes (Hospitalization, Other)
  Sender: FDA-Public Use
  Company Number: ES-Accord-310004

PATIENT
  Age: 69 Year
  Sex: Male
  Weight: 85.9 kg

DRUGS (36)
  1. GEMCITABINE [Suspect]
     Active Substance: GEMCITABINE
     Indication: Ductal adenocarcinoma of pancreas
     Dosage: ONCE
     Route: 042
     Dates: start: 20221121, end: 20221121
  2. PACLITAXEL [Suspect]
     Active Substance: PACLITAXEL
     Indication: Ductal adenocarcinoma of pancreas
     Dosage: ONCE
     Route: 042
     Dates: start: 20221121, end: 20221121
  3. PANTOPRAZOLE SODIUM [Concomitant]
     Active Substance: PANTOPRAZOLE SODIUM
     Dosage: 1 IN 1 D
     Route: 048
     Dates: start: 20220112
  4. ASPIRIN [Concomitant]
     Active Substance: ASPIRIN
     Indication: Hypotension
     Dosage: 1 IN 1 D
     Route: 048
     Dates: start: 20220112
  5. BUDESONIDE [Concomitant]
     Active Substance: BUDESONIDE
     Indication: Pneumonia
     Dosage: 1 IN 1 D
     Route: 045
     Dates: start: 20221212
  6. CALCIFEDIOL [Concomitant]
     Active Substance: CALCIFEDIOL
     Indication: Prophylaxis
     Dosage: 1 IN 15 D
     Route: 048
     Dates: start: 20220112
  7. CINITAPRIDE [Concomitant]
     Active Substance: CINITAPRIDE
     Indication: Prophylaxis
     Dosage: 3 IN 1 D
     Route: 048
     Dates: start: 20221103
  8. ENALAPRIL [Concomitant]
     Active Substance: ENALAPRIL
     Indication: Hypotension
     Dosage: 1 IN 1 D
     Route: 048
     Dates: start: 20220112
  9. FUROSEMIDE [Concomitant]
     Active Substance: FUROSEMIDE
     Indication: Hypertension
     Dosage: 2 IN 1 D
     Route: 048
     Dates: start: 20221110
  10. IBUPROFEN [Concomitant]
     Active Substance: IBUPROFEN
     Indication: Pain prophylaxis
     Dosage: 2 IN 1 D
     Route: 048
     Dates: start: 20221111
  11. NOVORAPID [Concomitant]
     Active Substance: INSULIN ASPART
     Indication: Type 2 diabetes mellitus
     Dosage: 1 IN 1 D
     Route: 030
     Dates: start: 20220817
  12. IPRATROPIUM BROMIDE [Concomitant]
     Active Substance: IPRATROPIUM BROMIDE\IPRATROPIUM BROMIDE ANHYDROUS
     Indication: Pneumonia
     Dosage: 3 IN 1 D
     Route: 045
     Dates: start: 20221212
  13. METAMIZOL [Concomitant]
     Active Substance: METAMIZOLE SODIUM
     Indication: Pain prophylaxis
     Dosage: 3 IN 1 D
     Route: 048
     Dates: start: 20221111
  14. OXYGEN [Concomitant]
     Active Substance: OXYGEN
     Indication: Pneumonia
     Dosage: 1 IN 1 D
     Route: 045
     Dates: start: 20221204
  15. INSULIN NOS [Concomitant]
     Active Substance: INSULIN NOS
     Indication: Diabetes mellitus
     Dosage: 1 IN 1 D
     Route: 058
     Dates: start: 20220817
  16. ZOLPIDEM [Concomitant]
     Active Substance: ZOLPIDEM TARTRATE
     Indication: Insomnia
     Dosage: AS REQUIRED
     Route: 048
     Dates: start: 20221212
  17. GEMCITABINE [Suspect]
     Active Substance: GEMCITABINE
     Indication: Ductal adenocarcinoma of pancreas
     Dosage: ONCE
     Route: 042
     Dates: start: 20221128, end: 20221128
  18. GEMCITABINE [Suspect]
     Active Substance: GEMCITABINE
     Indication: Ductal adenocarcinoma of pancreas
     Dosage: ONCE
     Route: 042
     Dates: start: 20221219, end: 20221219
  19. GEMCITABINE [Suspect]
     Active Substance: GEMCITABINE
     Indication: Ductal adenocarcinoma of pancreas
     Dosage: ONCE
     Route: 042
     Dates: start: 20221227, end: 20221227
  20. GEMCITABINE [Suspect]
     Active Substance: GEMCITABINE
     Indication: Ductal adenocarcinoma of pancreas
     Dosage: ONCE
     Route: 042
     Dates: start: 20230116, end: 20230116
  21. GEMCITABINE [Suspect]
     Active Substance: GEMCITABINE
     Indication: Ductal adenocarcinoma of pancreas
     Dosage: ONCE
     Route: 042
     Dates: start: 20230123, end: 20230123
  22. GEMCITABINE [Suspect]
     Active Substance: GEMCITABINE
     Indication: Ductal adenocarcinoma of pancreas
     Dosage: ONCE
     Route: 042
     Dates: start: 20230130, end: 20230130
  23. GEMCITABINE [Suspect]
     Active Substance: GEMCITABINE
     Indication: Ductal adenocarcinoma of pancreas
     Dosage: ONCE
     Route: 042
     Dates: start: 20230227, end: 20230227
  24. GEMCITABINE [Suspect]
     Active Substance: GEMCITABINE
     Indication: Ductal adenocarcinoma of pancreas
     Dosage: ONCE
     Route: 042
     Dates: start: 20230306, end: 20230306
  25. GEMCITABINE [Suspect]
     Active Substance: GEMCITABINE
     Indication: Ductal adenocarcinoma of pancreas
     Dosage: ONCE
     Route: 042
     Dates: start: 20230320, end: 20230320
  26. GEMCITABINE [Suspect]
     Active Substance: GEMCITABINE
     Indication: Ductal adenocarcinoma of pancreas
     Dosage: ONCE
     Route: 042
     Dates: start: 20230220, end: 20230220
  27. PACLITAXEL [Suspect]
     Active Substance: PACLITAXEL
     Indication: Ductal adenocarcinoma of pancreas
     Dosage: ONCE
     Route: 042
     Dates: start: 20221128, end: 20221128
  28. PACLITAXEL [Suspect]
     Active Substance: PACLITAXEL
     Indication: Ductal adenocarcinoma of pancreas
     Dosage: ONCE
     Route: 042
     Dates: start: 20221219, end: 20221219
  29. PACLITAXEL [Suspect]
     Active Substance: PACLITAXEL
     Indication: Ductal adenocarcinoma of pancreas
     Dosage: ONCE
     Route: 042
     Dates: start: 20221227, end: 20221227
  30. PACLITAXEL [Suspect]
     Active Substance: PACLITAXEL
     Indication: Ductal adenocarcinoma of pancreas
     Dosage: ONCE
     Route: 042
     Dates: start: 20230116, end: 20230116
  31. PACLITAXEL [Suspect]
     Active Substance: PACLITAXEL
     Indication: Ductal adenocarcinoma of pancreas
     Dosage: ONCE
     Route: 042
     Dates: start: 20230123, end: 20230123
  32. PACLITAXEL [Suspect]
     Active Substance: PACLITAXEL
     Indication: Ductal adenocarcinoma of pancreas
     Dosage: ONCE
     Route: 042
     Dates: start: 20230130, end: 20230130
  33. PACLITAXEL [Suspect]
     Active Substance: PACLITAXEL
     Indication: Ductal adenocarcinoma of pancreas
     Dosage: ONCE
     Route: 042
     Dates: start: 20230220, end: 20230220
  34. PACLITAXEL [Suspect]
     Active Substance: PACLITAXEL
     Indication: Ductal adenocarcinoma of pancreas
     Dosage: ONCE
     Route: 042
     Dates: start: 20230227, end: 20230227
  35. PACLITAXEL [Suspect]
     Active Substance: PACLITAXEL
     Indication: Ductal adenocarcinoma of pancreas
     Dosage: ONCE
     Route: 042
     Dates: start: 20230306, end: 20230306
  36. PACLITAXEL [Suspect]
     Active Substance: PACLITAXEL
     Indication: Ductal adenocarcinoma of pancreas
     Dosage: ONCE
     Route: 042
     Dates: start: 20230320, end: 20230320

REACTIONS (4)
  - Diarrhoea [Not Recovered/Not Resolved]
  - Acute kidney injury [Not Recovered/Not Resolved]
  - Febrile neutropenia [Not Recovered/Not Resolved]
  - Hyponatraemia [Not Recovered/Not Resolved]

NARRATIVE: CASE EVENT DATE: 20230325
